FAERS Safety Report 8981003 (Version 1)
Quarter: 2012Q4

REPORT INFORMATION
  Report Type: 
  Country: BR (occurrence: BR)
  Receive Date: 20121221
  Receipt Date: 20121221
  Transmission Date: 20130627
  Serious: Yes (Hospitalization)
  Sender: FDA-Public Use
  Company Number: BR-PFIZER INC-2012321914

PATIENT
  Age: 49 Year
  Sex: Male

DRUGS (2)
  1. CELEBRA [Suspect]
     Indication: BACK PAIN
     Dosage: 200 mg, 2x/day
     Route: 048
     Dates: start: 20121010, end: 20121204
  2. CELEBRA [Suspect]
     Indication: HERNIATED DISC

REACTIONS (1)
  - Infarction [Unknown]
